FAERS Safety Report 6328771-8 (Version None)
Quarter: 2009Q3

REPORT INFORMATION
  Report Type: 
  Country: None (occurrence: None)
  Receive Date: 20090826
  Receipt Date: 20090818
  Transmission Date: 20100115
  Serious: Yes (Other)
  Sender: FDA-Public Use
  Company Number: US-ALLERGAN-0911495US

PATIENT
  Age: 47 Year
  Sex: Female

DRUGS (3)
  1. BOTOX COSMETIC [Suspect]
     Indication: SKIN WRINKLING
     Dosage: UNK
     Route: 030
     Dates: start: 20090401, end: 20090401
  2. RESTYLANE [Concomitant]
     Dosage: UNK
     Dates: start: 20090401, end: 20090401
  3. AMOXICILLIN [Concomitant]
     Indication: TOOTH EXTRACTION

REACTIONS (6)
  - EAR DISCOMFORT [None]
  - FLUID RETENTION [None]
  - HEADACHE [None]
  - MULTIPLE SCLEROSIS [None]
  - PARAESTHESIA [None]
  - SWELLING FACE [None]
